FAERS Safety Report 7399543-0 (Version None)
Quarter: 2011Q1

REPORT INFORMATION
  Report Type: 
  Country: None (occurrence: None)
  Receive Date: 20110330
  Receipt Date: 20110315
  Transmission Date: 20110831
  Serious: Yes (Other)
  Sender: FDA-Public Use
  Company Number: 2011SP000931

PATIENT
  Age: 70 Year
  Sex: Female
  Weight: 47 kg

DRUGS (4)
  1. OMNARIS [Suspect]
     Indication: SINUSITIS
     Dosage: 200 UG; QD; NASAL
     Route: 045
     Dates: start: 20110218, end: 20110301
  2. OMNARIS [Suspect]
     Indication: SINUSITIS
     Dosage: 200 UG; QD; NASAL
     Route: 045
     Dates: start: 20110301, end: 20110301
  3. DIOVANE [Concomitant]
  4. PANTOPRAZOLE [Concomitant]

REACTIONS (6)
  - APPARENT DEATH [None]
  - EYE IRRITATION [None]
  - APPLICATION SITE PAIN [None]
  - EYE PRURITUS [None]
  - INCORRECT ROUTE OF DRUG ADMINISTRATION [None]
  - APPLICATION SITE SCAB [None]
